FAERS Safety Report 12470605 (Version 1)
Quarter: 2016Q2

REPORT INFORMATION
  Report Type: Spontaneous
  Country: US (occurrence: None)
  Receive Date: 20160615
  Receipt Date: 20160615
  Transmission Date: 20160815
  Serious: Yes (Other)
  Sender: FDA-Public Use
  Company Number: None

PATIENT
  Age: 16 Year
  Sex: Female
  Weight: 55.34 kg

DRUGS (1)
  1. TRI-LO-SPRINTEC [Suspect]
     Active Substance: ETHINYL ESTRADIOL\NORGESTIMATE
     Route: 048
     Dates: start: 20160522, end: 20160611

REACTIONS (6)
  - Muscle spasms [None]
  - Acne [None]
  - Product formulation issue [None]
  - Mood swings [None]
  - Metrorrhagia [None]
  - Product substitution issue [None]

NARRATIVE: CASE EVENT DATE: 20160530
